FAERS Safety Report 8184737-7 (Version None)
Quarter: 2012Q1

REPORT INFORMATION
  Report Type: 
  Country: None (occurrence: None)
  Receive Date: 20120305
  Receipt Date: 20120305
  Transmission Date: 20120608
  Serious: Yes (Other)
  Sender: FDA-Public Use
  Company Number: None

PATIENT
  Age: 30 Year
  Sex: Female
  Weight: 49.895 kg

DRUGS (1)
  1. DEPO-PROVERA [Suspect]
     Indication: CONTRACEPTION
     Dosage: 150 MG
     Route: 051
     Dates: start: 20091116, end: 20110212

REACTIONS (5)
  - DEPRESSION [None]
  - PARANOIA [None]
  - DIZZINESS [None]
  - LOSS OF CONSCIOUSNESS [None]
  - AMNESIA [None]
